FAERS Safety Report 19510930 (Version 1)
Quarter: 2021Q3

REPORT INFORMATION
  Report Type: Spontaneous
  Country: US (occurrence: US)
  Receive Date: 20210708
  Receipt Date: 20210708
  Transmission Date: 20211014
  Serious: Yes (Hospitalization)
  Sender: FDA-Public Use
  Company Number: None

PATIENT
  Sex: Female

DRUGS (2)
  1. BETHKIS [Suspect]
     Active Substance: TOBRAMYCIN
     Indication: BRONCHOPULMONARY DYSPLASIA
     Route: 055
     Dates: start: 20210129
  2. SOD CHL 7% NEBULIZER SOLUTIN [Concomitant]
     Active Substance: SODIUM CHLORIDE

REACTIONS (1)
  - Respiratory syncytial virus infection [None]
